FAERS Safety Report 6901752-9 (Version None)
Quarter: 2010Q3

REPORT INFORMATION
  Report Type: 
  Country: None (occurrence: None)
  Receive Date: 20100803
  Receipt Date: 20080303
  Transmission Date: 20110219
  Serious: No
  Sender: FDA-Public Use
  Company Number: US-PFIZER INC-2008020604

PATIENT
  Sex: Female

DRUGS (15)
  1. LYRICA [Suspect]
     Indication: DIABETIC NEUROPATHY
     Route: 048
  2. LAMICTAL [Concomitant]
  3. NAMENDA [Concomitant]
  4. RISPERDAL [Concomitant]
  5. NORCO [Concomitant]
  6. ATENOLOL [Concomitant]
  7. LISINOPRIL [Concomitant]
  8. OXYBUTYNIN CHLORIDE [Concomitant]
  9. PEPCID [Concomitant]
  10. LIDOCAINE [Concomitant]
     Route: 061
  11. DRUG, UNSPECIFIED [Concomitant]
     Route: 061
  12. GLYBURIDE AND METFORMIN HYDROCHLORIDE [Concomitant]
  13. INSULIN [Concomitant]
  14. COLACE [Concomitant]
  15. SENNA [Concomitant]

REACTIONS (1)
  - VISION BLURRED [None]
